FAERS Safety Report 6593309-7 (Version None)
Quarter: 2010Q1

REPORT INFORMATION
  Report Type: 
  Country: None (occurrence: None)
  Receive Date: 20100222
  Receipt Date: 20090217
  Transmission Date: 20100710
  Serious: Yes (Other)
  Sender: FDA-Public Use
  Company Number: US-BRISTOL-MYERS SQUIBB COMPANY-14467583

PATIENT
  Age: 55 Year
  Sex: Female

DRUGS (2)
  1. ORENCIA [Suspect]
     Indication: RHEUMATOID ARTHRITIS
     Dosage: DOSE REDUCED TO 500MG ON 30NOV08
     Route: 042
     Dates: start: 20071018
  2. PREDNISONE [Suspect]

REACTIONS (2)
  - COLITIS [None]
  - UROSEPSIS [None]
